FAERS Safety Report 26113690 (Version 1)
Quarter: 2025Q4

REPORT INFORMATION
  Report Type: Spontaneous
  Country: GB (occurrence: GB)
  Receive Date: 20251202
  Receipt Date: 20251202
  Transmission Date: 20260117
  Serious: Yes (Other)
  Sender: AMGEN
  Company Number: GB-AMGEN-GBRSP2025234113

PATIENT

DRUGS (3)
  1. ROMIPLOSTIM [Suspect]
     Active Substance: ROMIPLOSTIM
     Indication: Transplant dysfunction
     Dosage: UNK, (2.5, 5 OR 10 MCG/KG)
     Route: 065
  2. ROMIPLOSTIM [Suspect]
     Active Substance: ROMIPLOSTIM
     Indication: Immune-mediated cytopenia
  3. ROMIPLOSTIM [Suspect]
     Active Substance: ROMIPLOSTIM
     Indication: Transplant failure

REACTIONS (5)
  - Immune thrombocytopenia [Unknown]
  - Infection [Unknown]
  - Therapy non-responder [Unknown]
  - Platelet count decreased [Unknown]
  - Off label use [Unknown]
